FAERS Safety Report 18244439 (Version 2)
Quarter: 2020Q3

REPORT INFORMATION
  Report Type: Report from Study
  Country: JP (occurrence: JP)
  Receive Date: 20200908
  Receipt Date: 20200923
  Transmission Date: 20201103
  Serious: Yes (Life-Threatening, Hospitalization, Disabling, Other)
  Sender: FDA-Public Use
  Company Number: JP-INCYTE CORPORATION-2020IN008476

PATIENT

DRUGS (4)
  1. JAKAVI [Suspect]
     Active Substance: RUXOLITINIB
     Indication: MYELOFIBROSIS
     Dosage: 40 MG(IN TWO DIVIDED DOSES),BID
     Route: 048
     Dates: end: 20190723
  2. JAKAVI [Suspect]
     Active Substance: RUXOLITINIB
     Dosage: 45 MG(IN TWO DIVIDED DOSES),BID
     Route: 048
     Dates: start: 20190724, end: 20190730
  3. JAKAVI [Suspect]
     Active Substance: RUXOLITINIB
     Dosage: 35 MG(IN TWO DIVIDED DOSES),BID
     Route: 048
     Dates: start: 20190731
  4. EDARAVONE [Suspect]
     Active Substance: EDARAVONE
     Indication: ANTERIOR SPINAL ARTERY SYNDROME
     Dosage: 60 MG
     Route: 065
     Dates: start: 20190726, end: 20190805

REACTIONS (3)
  - Pulmonary embolism [Recovered/Resolved]
  - Anterior spinal artery syndrome [Recovered/Resolved with Sequelae]
  - Hepatic function abnormal [Recovered/Resolved]

NARRATIVE: CASE EVENT DATE: 20190726
